FAERS Safety Report 17314000 (Version 1)
Quarter: 2020Q1

REPORT INFORMATION
  Report Type: Spontaneous
  Country: US (occurrence: US)
  Receive Date: 20200123
  Receipt Date: 20200123
  Transmission Date: 20200409
  Serious: Yes (Disabling)
  Sender: FDA-Public Use
  Company Number: None

PATIENT
  Age: 63 Year
  Sex: Female
  Weight: 108 kg

DRUGS (7)
  1. STELARA [Concomitant]
     Active Substance: USTEKINUMAB
  2. VITAMIN D [Concomitant]
     Active Substance: VITAMIN D NOS
  3. HYDROCHLORIDE [Concomitant]
     Active Substance: UNSPECIFIED INGREDIENT
  4. HUMIRA [Suspect]
     Active Substance: ADALIMUMAB
     Indication: PSORIASIS
     Dosage: ?          QUANTITY:1 INJECTION(S);OTHER FREQUENCY:TWICE PER MONTH;?
     Route: 058
  5. ADULT PROBIOTIC [Concomitant]
  6. STATIN [Concomitant]
     Active Substance: UNSPECIFIED INGREDIENT
  7. CITROLOPRAM [Concomitant]

REACTIONS (2)
  - Guttate psoriasis [None]
  - Adverse drug reaction [None]

NARRATIVE: CASE EVENT DATE: 20191220
